FAERS Safety Report 6840833-5 (Version None)
Quarter: 2010Q3

REPORT INFORMATION
  Report Type: 
  Country: None (occurrence: None)
  Receive Date: 20100714
  Receipt Date: 20100705
  Transmission Date: 20110219
  Serious: Yes (Hospitalization)
  Sender: FDA-Public Use
  Company Number: DE-ABBOTT-10P-062-0655524-00

PATIENT
  Sex: Male
  Weight: 66 kg

DRUGS (1)
  1. HUMIRA [Suspect]
     Indication: CROHN'S DISEASE
     Dates: start: 20100318

REACTIONS (1)
  - ANAL STENOSIS [None]
